FAERS Safety Report 7335522-7 (Version None)
Quarter: 2011Q1

REPORT INFORMATION
  Report Type: 
  Country: None (occurrence: None)
  Receive Date: 20110301
  Receipt Date: 20110301
  Transmission Date: 20110831
  Serious: Yes (Life-Threatening, Other)
  Sender: FDA-Public Use
  Company Number: None

PATIENT
  Age: 48 Year
  Sex: Female
  Weight: 86.1834 kg

DRUGS (1)
  1. PANTOPRAZOLE [Suspect]
     Indication: OESOPHAGEAL DISORDER
     Dosage: 1 TABLET ONCE PER DAY PO
     Route: 048
     Dates: start: 20110109, end: 20110221

REACTIONS (14)
  - MUSCULAR WEAKNESS [None]
  - VITAMIN B12 DEFICIENCY [None]
  - ARTHRALGIA [None]
  - MYALGIA [None]
  - EXTRASYSTOLES [None]
  - CHEST DISCOMFORT [None]
  - PHARYNGEAL OEDEMA [None]
  - DYSPHAGIA [None]
  - DRY THROAT [None]
  - BONE PAIN [None]
  - ARRHYTHMIA [None]
  - ABDOMINAL PAIN UPPER [None]
  - EYE PAIN [None]
  - LETHARGY [None]
